FAERS Safety Report 5225848-5 (Version None)
Quarter: 2007Q1

REPORT INFORMATION
  Report Type: 
  Country: None (occurrence: None)
  Receive Date: 20070201
  Receipt Date: 20070123
  Transmission Date: 20070707
  Serious: Yes (Death)
  Sender: FDA-Public Use
  Company Number: JP-JNJFOC-20070106023

PATIENT
  Age: 65 Year
  Sex: Female

DRUGS (3)
  1. ITRIZOLE [Suspect]
     Indication: RESPIRATORY MONILIASIS
     Route: 042
     Dates: start: 20070113, end: 20070114
  2. PREDONINE [Concomitant]
     Route: 065
  3. MICAFUNGIN SODIUM [Concomitant]
     Indication: RESPIRATORY MONILIASIS
     Route: 065

REACTIONS (1)
  - RESPIRATORY MONILIASIS [None]
